FAERS Safety Report 13281711 (Version 1)
Quarter: 2017Q1

REPORT INFORMATION
  Report Type: Spontaneous
  Country: US (occurrence: US)
  Receive Date: 20170301
  Receipt Date: 20170301
  Transmission Date: 20170428
  Serious: No
  Sender: FDA-Public Use
  Company Number: US-PFIZER INC-2017088368

PATIENT
  Age: 16 Year
  Sex: Female

DRUGS (1)
  1. LYRICA [Suspect]
     Active Substance: PREGABALIN
     Indication: NEUROFIBROMATOSIS

REACTIONS (3)
  - Drug administered to patient of inappropriate age [Unknown]
  - Product use issue [Unknown]
  - Chest pain [Unknown]
